FAERS Safety Report 5237289-5 (Version None)
Quarter: 2007Q1

REPORT INFORMATION
  Report Type: 
  Country: None (occurrence: None)
  Receive Date: 20070213
  Receipt Date: 20070202
  Transmission Date: 20070707
  Serious: Yes (Life-Threatening, Hospitalization, Other)
  Sender: FDA-Public Use
  Company Number: DE-JNJFOC-20070101181

PATIENT
  Sex: Female
  Weight: 89 kg

DRUGS (2)
  1. TOPAMAX [Suspect]
     Indication: MIGRAINE
     Route: 048
  2. TRIPTAN [Concomitant]
     Indication: MIGRAINE

REACTIONS (1)
  - CEREBROVASCULAR ACCIDENT [None]
